FAERS Safety Report 5630589-6 (Version None)
Quarter: 2008Q1

REPORT INFORMATION
  Report Type: 
  Country: None (occurrence: None)
  Receive Date: 20080219
  Receipt Date: 20080208
  Transmission Date: 20080703
  Serious: Yes (Death)
  Sender: FDA-Public Use
  Company Number: B0508320A

PATIENT

DRUGS (1)
  1. AUGMENTIN '125' [Suspect]
     Indication: DRUG USE FOR UNKNOWN INDICATION
     Dosage: 1G SINGLE DOSE
     Route: 048
     Dates: start: 20080208, end: 20080208

REACTIONS (2)
  - DEATH [None]
  - DRUG ADMINISTRATION ERROR [None]
